FAERS Safety Report 21653379 (Version 1)
Quarter: 2022Q4

REPORT INFORMATION
  Report Type: Spontaneous
  Country: CN (occurrence: None)
  Receive Date: 20221128
  Receipt Date: 20221128
  Transmission Date: 20230113
  Serious: Yes (Other)
  Sender: FDA-Public Use
  Company Number: CN-ROCHE-3226481

PATIENT
  Age: 48 Year
  Sex: Male
  Weight: 71 kg

DRUGS (5)
  1. FLUOROURACIL [Suspect]
     Active Substance: FLUOROURACIL
     Indication: Colon cancer
     Route: 040
     Dates: start: 20220914, end: 20220914
  2. FLUOROURACIL [Suspect]
     Active Substance: FLUOROURACIL
     Dosage: LASTING 46 HOURS
     Route: 040
     Dates: start: 20220914, end: 202209
  3. IRINOTECAN HYDROCHLORIDE [Suspect]
     Active Substance: IRINOTECAN HYDROCHLORIDE
     Indication: Colon cancer
     Route: 041
     Dates: start: 20220914, end: 20220914
  4. AVASTIN [Suspect]
     Active Substance: BEVACIZUMAB
     Indication: Colon cancer
     Route: 041
     Dates: start: 20220914, end: 20220914
  5. LEUCOVORIN CALCIUM [Concomitant]
     Active Substance: LEUCOVORIN CALCIUM
     Indication: Colon cancer
     Route: 041
     Dates: start: 20220914, end: 20220914

REACTIONS (1)
  - Myelosuppression [Unknown]

NARRATIVE: CASE EVENT DATE: 20221031
